FAERS Safety Report 9703102 (Version 1)
Quarter: 2013Q4

REPORT INFORMATION
  Report Type: Spontaneous
  Country: US (occurrence: US)
  Receive Date: 20131122
  Receipt Date: 20131122
  Transmission Date: 20140711
  Serious: No
  Sender: FDA-Public Use
  Company Number: US-BIOGENIDEC-2013BI108488

PATIENT
  Age: 52 Year
  Sex: Female

DRUGS (18)
  1. AVONEX [Suspect]
     Indication: MULTIPLE SCLEROSIS
     Route: 030
     Dates: start: 20100622, end: 20110708
  2. AVONEX [Suspect]
     Indication: MULTIPLE SCLEROSIS
     Route: 030
     Dates: start: 20120522, end: 20130815
  3. AVONEX [Suspect]
     Indication: MULTIPLE SCLEROSIS
     Route: 030
     Dates: start: 20131106
  4. OXYCONTIN [Concomitant]
     Indication: PAIN
  5. LYRICA [Concomitant]
     Indication: PAIN
  6. TRILEPTAL [Concomitant]
     Indication: PAIN
  7. MYSOLINE [Concomitant]
  8. RITALIN [Concomitant]
     Indication: FATIGUE
  9. PAXIL [Concomitant]
     Indication: DEPRESSION
     Dates: start: 2007
  10. EFFEXOR [Concomitant]
     Indication: DEPRESSION
     Dates: start: 2007
  11. BUSPAR [Concomitant]
     Indication: ANXIETY
     Dates: start: 2007
  12. VALIUM [Concomitant]
     Indication: DEPRESSION
     Dates: start: 2007
  13. VALIUM [Concomitant]
     Indication: ANXIETY
     Dates: start: 2007
  14. ABILIFY [Concomitant]
     Indication: DEPRESSION
  15. ABILIFY [Concomitant]
     Indication: ANXIETY
  16. CORTEF [Concomitant]
     Indication: ADRENAL INSUFFICIENCY
  17. MIDODRINE [Concomitant]
     Indication: ADRENAL INSUFFICIENCY
  18. FLUOROACETATE (NOS) [Concomitant]
     Indication: HYPOTENSION

REACTIONS (2)
  - Injection site atrophy [Recovered/Resolved]
  - Injection site bruising [Not Recovered/Not Resolved]
